FAERS Safety Report 13725935 (Version 2)
Quarter: 2017Q3

REPORT INFORMATION
  Report Type: Report from Study
  Country: US (occurrence: US)
  Receive Date: 20170707
  Receipt Date: 20170809
  Transmission Date: 20171127
  Serious: Yes (Hospitalization, Other)
  Sender: FDA-Public Use
  Company Number: US-ASTRAZENECA-2015SF10848

PATIENT
  Age: 29379 Day
  Sex: Female
  Weight: 57.2 kg

DRUGS (13)
  1. LYNPARZA [Suspect]
     Active Substance: OLAPARIB
     Indication: OVARIAN CANCER
     Route: 048
     Dates: start: 20151022
  2. LYNPARZA [Suspect]
     Active Substance: OLAPARIB
     Indication: OVARIAN CANCER
     Dosage: 50.0MG UNKNOWN
     Route: 048
  3. LYNPARZA [Suspect]
     Active Substance: OLAPARIB
     Indication: OVARIAN CANCER
     Dosage: 200.0MG UNKNOWN
     Route: 048
     Dates: start: 201701, end: 201702
  4. CARAFATE [Concomitant]
     Active Substance: SUCRALFATE
     Indication: THROMBOSIS
     Dosage: AT NIGHT
     Route: 048
  5. LYNPARZA [Suspect]
     Active Substance: OLAPARIB
     Indication: OVARIAN CANCER
     Dosage: 300.0MG UNKNOWN
     Route: 048
  6. NEXIUM 24HR [Concomitant]
     Active Substance: ESOMEPRAZOLE MAGNESIUM
     Dosage: DAILY
  7. OMEPRAZOLE. [Concomitant]
     Active Substance: OMEPRAZOLE
     Indication: THROMBOSIS
     Route: 048
  8. MIRALAX [Concomitant]
     Active Substance: POLYETHYLENE GLYCOL 3350
     Indication: THROMBOSIS
     Route: 048
  9. LISINOPRIL. [Concomitant]
     Active Substance: LISINOPRIL
     Indication: THROMBOSIS
     Route: 048
  10. LYNPARZA [Suspect]
     Active Substance: OLAPARIB
     Indication: OVARIAN CANCER
     Route: 048
     Dates: start: 20151104
  11. LYNPARZA [Suspect]
     Active Substance: OLAPARIB
     Indication: OVARIAN CANCER
     Route: 048
     Dates: start: 20151111
  12. OMEPRAZOLE. [Concomitant]
     Active Substance: OMEPRAZOLE
     Indication: THROMBOSIS
     Route: 048
  13. BABY ASPIRIN [Concomitant]
     Active Substance: ASPIRIN
     Indication: THROMBOSIS
     Dosage: 81.0MG UNKNOWN
     Route: 048
     Dates: end: 20170110

REACTIONS (16)
  - Fatigue [Unknown]
  - Intentional product use issue [Unknown]
  - Small intestinal obstruction [Recovered/Resolved]
  - Haemorrhagic anaemia [Unknown]
  - Arthralgia [Unknown]
  - Flatulence [Unknown]
  - Balance disorder [Unknown]
  - Carbohydrate antigen 125 increased [Unknown]
  - Anaemia [Unknown]
  - Eructation [Unknown]
  - Hypertension [Unknown]
  - Wound infection [Unknown]
  - Anaemia of chronic disease [Unknown]
  - Abdominal discomfort [Unknown]
  - Constipation [Recovering/Resolving]
  - Post procedural complication [Unknown]

NARRATIVE: CASE EVENT DATE: 20151111
